FAERS Safety Report 22141793 (Version 1)
Quarter: 2023Q1

REPORT INFORMATION
  Report Type: Spontaneous
  Country: US (occurrence: None)
  Receive Date: 20230326
  Receipt Date: 20230326
  Transmission Date: 20230417
  Serious: Yes (Other)
  Sender: FDA-Public Use
  Company Number: None

PATIENT
  Age: 66 Year
  Sex: Female
  Weight: 96.75 kg

DRUGS (1)
  1. LEVOFLOXACIN [Suspect]
     Active Substance: LEVOFLOXACIN
     Indication: Pneumonia
     Dosage: OTHER QUANTITY : 1 TABLET(S);?FREQUENCY : DAILY;?
     Route: 048
     Dates: start: 20230306, end: 20230309

REACTIONS (14)
  - Pain in extremity [None]
  - Therapy cessation [None]
  - Tendonitis [None]
  - Gait disturbance [None]
  - Tendonitis [None]
  - Arthralgia [None]
  - Joint range of motion decreased [None]
  - Pain [None]
  - Pain in extremity [None]
  - Pain in extremity [None]
  - Arthralgia [None]
  - Arthralgia [None]
  - Arthralgia [None]
  - Neuropathy peripheral [None]

NARRATIVE: CASE EVENT DATE: 20230309
